FAERS Safety Report 16437187 (Version 2)
Quarter: 2019Q4

REPORT INFORMATION
  Report Type: Spontaneous
  Country: CA (occurrence: CA)
  Receive Date: 20190615
  Receipt Date: 20191105
  Transmission Date: 20200122
  Serious: Yes (Death, Other)
  Sender: FDA-Public Use
  Company Number: CA-009507513-1906CAN005479

PATIENT
  Sex: Male

DRUGS (8)
  1. POSANOL [Suspect]
     Active Substance: POSACONAZOLE
     Indication: CENTRAL NERVOUS SYSTEM FUNGAL INFECTION
     Route: 065
  2. AMPHOTERICIN B. [Suspect]
     Active Substance: AMPHOTERICIN B
     Indication: CENTRAL NERVOUS SYSTEM FUNGAL INFECTION
     Route: 065
  3. CYTARABINE INJECTION [Concomitant]
     Active Substance: CYTARABINE
     Route: 065
  4. CANCIDAS [Suspect]
     Active Substance: CASPOFUNGIN ACETATE
     Indication: ANTIFUNGAL PROPHYLAXIS
     Route: 065
  5. DAUNORUBICIN [Concomitant]
     Active Substance: DAUNORUBICIN
     Route: 065
  6. ETOPOSIDE. [Concomitant]
     Active Substance: ETOPOSIDE
     Route: 065
  7. METHYLPREDNISOLONE SODIUM SUCCINATE. [Concomitant]
     Active Substance: METHYLPREDNISOLONE SODIUM SUCCINATE
     Route: 065
  8. VORICONAZOLE. [Suspect]
     Active Substance: VORICONAZOLE
     Indication: CENTRAL NERVOUS SYSTEM FUNGAL INFECTION
     Route: 065

REACTIONS (2)
  - Drug resistance [Fatal]
  - Central nervous system fungal infection [Fatal]
